FAERS Safety Report 19788808 (Version 1)
Quarter: 2021Q3

REPORT INFORMATION
  Report Type: Report from Study
  Country: JP (occurrence: JP)
  Receive Date: 20210904
  Receipt Date: 20210904
  Transmission Date: 20211014
  Serious: Yes (Other)
  Sender: FDA-Public Use
  Company Number: JP-AUROBINDO-AUR-APL-2021-037533

PATIENT
  Age: 64 Year
  Sex: Male
  Weight: 52 kg

DRUGS (16)
  1. FOLOTYN [Suspect]
     Active Substance: PRALATREXATE
     Indication: ANGIOIMMUNOBLASTIC T-CELL LYMPHOMA STAGE III
     Dosage: 30 MILLIGRAM/SQ. METER,SINGLE
     Route: 042
     Dates: start: 20210707, end: 20210707
  2. FOLOTYN [Suspect]
     Active Substance: PRALATREXATE
     Dosage: 30 MILLIGRAM/SQ. METER,WEEKLY
     Route: 042
     Dates: start: 20201209, end: 20201216
  3. FOLOTYN [Suspect]
     Active Substance: PRALATREXATE
     Dosage: 30 MILLIGRAM/SQ. METER,WEEKLY
     Route: 042
     Dates: start: 20201111, end: 20201118
  4. FOLOTYN [Suspect]
     Active Substance: PRALATREXATE
     Dosage: 30 MILLIGRAM/SQ. METER,WEEKLYWEEKLY
     Route: 042
     Dates: start: 20200824, end: 20200914
  5. VITAMIN B12 [Suspect]
     Active Substance: CYANOCOBALAMIN
     Indication: PRODUCT USED FOR UNKNOWN INDICATION
     Dosage: UNK
     Route: 065
  6. FOLOTYN [Suspect]
     Active Substance: PRALATREXATE
     Dosage: 30 MILLIGRAM/SQ. METER,WEEKLY
     Route: 042
     Dates: start: 20201007, end: 20201028
  7. FOLIC ACID. [Suspect]
     Active Substance: FOLIC ACID
     Indication: PRODUCT USED FOR UNKNOWN INDICATION
     Dosage: UNK
     Route: 065
  8. FOLOTYN [Suspect]
     Active Substance: PRALATREXATE
     Dosage: 30 MILLIGRAM/SQ. METER,SINGLE
     Route: 042
     Dates: start: 20200812, end: 20200812
  9. FOLOTYN [Suspect]
     Active Substance: PRALATREXATE
     Dosage: 30 MILLIGRAM/SQ. METER,SINGLE
     Route: 042
     Dates: start: 20210303, end: 20210303
  10. FOLOTYN [Suspect]
     Active Substance: PRALATREXATE
     Dosage: 30 MILLIGRAM/SQ. METER,SINGLE
     Route: 042
     Dates: start: 20200923, end: 20200923
  11. FOLOTYN [Suspect]
     Active Substance: PRALATREXATE
     Dosage: UNK,WEEKLY
     Route: 042
     Dates: start: 20210512, end: 20210519
  12. FOLOTYN [Suspect]
     Active Substance: PRALATREXATE
     Dosage: UNK,SINGLE
     Route: 042
     Dates: start: 20210421, end: 20210421
  13. FOLOTYN [Suspect]
     Active Substance: PRALATREXATE
     Dosage: 30 MILLIGRAM/SQ. METER,SINGLE
     Route: 042
     Dates: start: 20210407, end: 20210407
  14. FOLOTYN [Suspect]
     Active Substance: PRALATREXATE
     Dosage: 30 MILLIGRAM/SQ. METER,WEEKLY
     Route: 042
     Dates: start: 20210317, end: 20210324
  15. FOLOTYN [Suspect]
     Active Substance: PRALATREXATE
     Dosage: 30 MILLIGRAM/SQ. METER,SINGLE
     Route: 042
     Dates: start: 20210217, end: 20210217
  16. FOLOTYN [Suspect]
     Active Substance: PRALATREXATE
     Dosage: 30 MILLIGRAM/SQ. METER,WEEKLY
     Route: 042
     Dates: start: 20210106, end: 20210120

REACTIONS (2)
  - Stomatitis [Unknown]
  - Febrile neutropenia [Unknown]
